FAERS Safety Report 23628020 (Version 1)
Quarter: 2024Q1

REPORT INFORMATION
  Report Type: Spontaneous
  Country: NL (occurrence: NL)
  Receive Date: 20240313
  Receipt Date: 20240313
  Transmission Date: 20240409
  Serious: Yes (Hospitalization)
  Sender: FDA-Public Use
  Company Number: None

PATIENT
  Age: 89 Year
  Sex: Male
  Weight: 85 kg

DRUGS (1)
  1. OSELTAMIVIR [Suspect]
     Active Substance: OSELTAMIVIR
     Indication: Influenza
     Dosage: 1 PIECE TWICE A DAY   / BRAND NAME NOT SPECIFIED
     Route: 065
     Dates: start: 20240126, end: 20240128

REACTIONS (1)
  - Hepatic failure [Unknown]
